FAERS Safety Report 5306971-3 (Version None)
Quarter: 2007Q2

REPORT INFORMATION
  Report Type: 
  Country: None (occurrence: None)
  Receive Date: 20070419
  Receipt Date: 20070413
  Transmission Date: 20071010
  Serious: Yes (Hospitalization)
  Sender: FDA-Public Use
  Company Number: 002#1#2007-00061

PATIENT
  Age: 1 Month
  Sex: 0

DRUGS (1)
  1. HYOSCYAMINE-SULFATE-ORAL-DROPS (HYOSCYAMINE SULFATE) [Suspect]
     Indication: ABDOMINAL PAIN
     Dosage: 4APF, 1ONCE, ORAL
     Route: 048
     Dates: start: 20070401

REACTIONS (2)
  - INCORRECT DOSE ADMINISTERED [None]
  - OVERDOSE [None]
